FAERS Safety Report 25443332 (Version 2)
Quarter: 2025Q2

REPORT INFORMATION
  Report Type: Spontaneous
  Country: HU (occurrence: HU)
  Receive Date: 20250617
  Receipt Date: 20250620
  Transmission Date: 20250717
  Serious: Yes (Other)
  Sender: BRISTOL-MYERS SQUIBB COMPANY
  Company Number: HU-PHCEU-2025-094

PATIENT
  Age: 70 Year
  Sex: Male

DRUGS (1)
  1. AZACITIDINE [Suspect]
     Active Substance: AZACITIDINE
     Indication: Myelodysplastic syndrome/myeloproliferative neoplasm overlap syndrome
     Dosage: 75 MG/M2 FOR 7 DAYS, EVERY FOURTH WEEK (MONTHLY), ACCORDING TO THE SMPC
     Route: 058
     Dates: start: 202202, end: 202408

REACTIONS (2)
  - Application site erythema [Unknown]
  - Gangrene [Unknown]

NARRATIVE: CASE EVENT DATE: 20240801
